FAERS Safety Report 5057595-7 (Version None)
Quarter: 2006Q3

REPORT INFORMATION
  Report Type: 
  Country: None (occurrence: None)
  Receive Date: 20060721
  Receipt Date: 20051212
  Transmission Date: 20061208
  Serious: No
  Sender: FDA-Public Use
  Company Number: US-GLAXOSMITHKLINE-A0585522A

PATIENT
  Sex: Female

DRUGS (5)
  1. AVANDIA [Suspect]
     Dosage: 4MG TWICE PER DAY
     Route: 048
  2. METFORMIN [Concomitant]
     Route: 065
  3. PAXIL [Concomitant]
  4. LIPITOR [Concomitant]
  5. TRICOR [Concomitant]

REACTIONS (2)
  - DIARRHOEA [None]
  - NAUSEA [None]
